FAERS Safety Report 12721242 (Version 1)
Quarter: 2016Q3

REPORT INFORMATION
  Report Type: Spontaneous
  Country: US (occurrence: US)
  Receive Date: 20160907
  Receipt Date: 20160907
  Transmission Date: 20161109
  Serious: No
  Sender: FDA-Public Use
  Company Number: US-MYLANLABS-2016M1031025

PATIENT

DRUGS (1)
  1. AMPHETAMINE ASPARTATE\AMPHETAMINE SULFATE\DEXTROAMPHETAMINE SACCHARATE\DEXTROAMPHETAMINE SULFATE [Suspect]
     Active Substance: AMPHETAMINE ASPARTATE\AMPHETAMINE SULFATE\DEXTROAMPHETAMINE SACCHARATE\DEXTROAMPHETAMINE SULFATE
     Dosage: UNK

REACTIONS (6)
  - Arthralgia [Recovered/Resolved]
  - Hypoaesthesia [Recovering/Resolving]
  - Product substitution issue [None]
  - Oedema peripheral [Recovering/Resolving]
  - Drug ineffective [Recovered/Resolved]
  - Hypoaesthesia [None]
